FAERS Safety Report 4278559-7 (Version None)
Quarter: 2004Q1

REPORT INFORMATION
  Report Type: 
  Country: None (occurrence: None)
  Receive Date: 20040122
  Receipt Date: 20031113
  Transmission Date: 20041129
  Serious: No
  Sender: FDA-Public Use
  Company Number: A01200305474

PATIENT
  Age: 53 Year
  Sex: Female

DRUGS (14)
  1. PLAVIX [Suspect]
     Indication: CORONARY ARTERY DISEASE
     Dosage: 75 MG QD ORAL
     Route: 048
     Dates: start: 20030301, end: 20031113
  2. KAPAKE (CODEINE/ PARACETAMOL) [Concomitant]
  3. SIMVASTATIN [Concomitant]
  4. NICORANDIL [Concomitant]
  5. SECURON SR (VERAPAMIL HYDROCHLORIDE) [Concomitant]
  6. BECLOMETHASONE DIPROPIONATE [Concomitant]
  7. SALMETEROL [Concomitant]
  8. SALBUTAMOL [Concomitant]
  9. GABAPENTIN [Concomitant]
  10. ACETAMINOPHEN [Concomitant]
  11. GLYCERYL TRINITRATE [Concomitant]
  12. PROCHLORPERAZINE MALEATE [Concomitant]
  13. GAVISCON ADVANCE LIQUID [Concomitant]
  14. DOUBLEBASE GEL (ISOPROPYL MYRISTATE) [Concomitant]

REACTIONS (1)
  - AGEUSIA [None]
